FAERS Safety Report 4300827-0 (Version None)
Quarter: 2004Q1

REPORT INFORMATION
  Report Type: 
  Country: None (occurrence: None)
  Receive Date: 20040220
  Receipt Date: 20040217
  Transmission Date: 20041129
  Serious: Yes (Hospitalization)
  Sender: FDA-Public Use
  Company Number: WAES 0402USA01216

PATIENT
  Age: 39 Year
  Sex: Female

DRUGS (1)
  1. MAXALT [Suspect]
     Route: 048

REACTIONS (3)
  - MUSCLE SPASMS [None]
  - SPEECH DISORDER [None]
  - TONGUE DISORDER [None]
